FAERS Safety Report 11525419 (Version 3)
Quarter: 2015Q4

REPORT INFORMATION
  Report Type: Spontaneous
  Country: US (occurrence: US)
  Receive Date: 20150918
  Receipt Date: 20151030
  Transmission Date: 20160304
  Serious: Yes (Other)
  Sender: FDA-Public Use
  Company Number: US-JNJFOC-20150911279

PATIENT
  Age: 64 Year
  Sex: Female

DRUGS (1)
  1. INVOKANA [Suspect]
     Active Substance: CANAGLIFLOZIN
     Indication: LATENT AUTOIMMUNE DIABETES IN ADULTS
     Route: 065

REACTIONS (2)
  - Diabetic ketoacidosis [Unknown]
  - Product use issue [Unknown]

NARRATIVE: CASE EVENT DATE: 201507
